FAERS Safety Report 24396730 (Version 1)
Quarter: 2024Q4

REPORT INFORMATION
  Report Type: Report from Study
  Country: US (occurrence: US)
  Receive Date: 20241004
  Receipt Date: 20241004
  Transmission Date: 20250115
  Serious: Yes (Other)
  Sender: RANBAXY
  Company Number: US-SUN PHARMACEUTICAL INDUSTRIES LTD-2024R1-471196

PATIENT
  Age: 37 Year
  Sex: Male

DRUGS (4)
  1. BACLOFEN [Suspect]
     Active Substance: BACLOFEN
     Indication: Dystonia
     Dosage: UNK
     Route: 065
  2. TRIHEXYPHENIDYL [Suspect]
     Active Substance: TRIHEXYPHENIDYL
     Indication: Dystonia
     Dosage: UNK
     Route: 065
  3. LEVODOPA [Suspect]
     Active Substance: LEVODOPA
     Indication: Dystonia
     Dosage: UNK
     Route: 065
  4. BOTULINUM TOXIN NOS [Suspect]
     Active Substance: BOTULINUM TOXIN NOS
     Indication: Dystonia
     Dosage: UNK
     Route: 065

REACTIONS (1)
  - Treatment failure [Unknown]
